FAERS Safety Report 17460236 (Version 2)
Quarter: 2020Q1

REPORT INFORMATION
  Report Type: Spontaneous
  Country: US (occurrence: US)
  Receive Date: 20200226
  Receipt Date: 20200311
  Transmission Date: 20200409
  Serious: No
  Sender: FDA-Public Use
  Company Number: US-PFIZER INC-2020080858

PATIENT
  Age: 68 Year
  Sex: Male
  Weight: 98 kg

DRUGS (2)
  1. CADUET [Suspect]
     Active Substance: AMLODIPINE BESYLATE\ATORVASTATIN CALCIUM
     Indication: CARDIAC DISORDER
     Dosage: 10-80MG, DAILY
     Route: 048
  2. CADUET [Suspect]
     Active Substance: AMLODIPINE BESYLATE\ATORVASTATIN CALCIUM
     Indication: HYPERTENSION
     Dosage: INITIALLY ON 80MG AND THEN SWITCHED TO 40MG THEN BACK TO 80MG, DAILY

REACTIONS (4)
  - Hypoacusis [Unknown]
  - Tinnitus [Unknown]
  - Expired product administered [Unknown]
  - Influenza [Recovered/Resolved with Sequelae]
